FAERS Safety Report 10521001 (Version 4)
Quarter: 2014Q4

REPORT INFORMATION
  Report Type: Report from Study
  Country: JP (occurrence: JP)
  Receive Date: 20141016
  Receipt Date: 20141209
  Transmission Date: 20150528
  Serious: Yes (Other)
  Sender: FDA-Public Use
  Company Number: JP-009507513-1409JPN003675

PATIENT
  Age: 55 Year
  Sex: Male

DRUGS (57)
  1. FOSAPREPITANT DIMEGLUMINE [Suspect]
     Active Substance: FOSAPREPITANT DIMEGLUMINE
     Indication: PROPHYLAXIS OF NAUSEA AND VOMITING
     Dosage: 150 MG, QD
     Route: 041
     Dates: start: 20140714, end: 20140714
  2. GASTER [Suspect]
     Active Substance: FAMOTIDINE
     Indication: PRODUCT USED FOR UNKNOWN INDICATION
     Dosage: 40 MG PER DAY
     Route: 042
     Dates: start: 20140714, end: 20140714
  3. GASTER [Suspect]
     Active Substance: FAMOTIDINE
     Dosage: 40 MG PER DAY
     Route: 042
     Dates: start: 20140502, end: 20140506
  4. DECADRON [Concomitant]
     Active Substance: DEXAMETHASONE
     Dosage: 6.60 MG DAILY
     Dates: start: 20140714, end: 20140716
  5. CONTOMIN [Concomitant]
     Active Substance: CHLORPROMAZINE
     Dosage: 25 MG DAILY
     Dates: start: 20140604, end: 20140604
  6. CISPLATIN. [Suspect]
     Active Substance: CISPLATIN
     Dosage: 105 MG PER DAY
     Route: 042
     Dates: start: 20140623, end: 20140623
  7. ALOXI [Suspect]
     Active Substance: PALONOSETRON HYDROCHLORIDE
     Indication: PRODUCT USED FOR UNKNOWN INDICATION
     Dosage: 0.75 MG PER DAY
     Route: 041
     Dates: start: 20140714, end: 20140714
  8. ALOXI [Suspect]
     Active Substance: PALONOSETRON HYDROCHLORIDE
     Dosage: 0.75 MG PER DAY
     Route: 041
     Dates: start: 20140502, end: 20140502
  9. DECADRON [Concomitant]
     Active Substance: DEXAMETHASONE
     Dosage: 6.60 MG DAILY
     Dates: start: 20140602, end: 20140604
  10. DECADRON [Concomitant]
     Active Substance: DEXAMETHASONE
     Dosage: 6.60 MG DAILY
     Dates: start: 20140623, end: 20140625
  11. DECADRON [Concomitant]
     Active Substance: DEXAMETHASONE
     Dosage: 3.30 MG DAILY
     Dates: start: 20140626, end: 20140627
  12. OXINORM (OXYCODONE HYDROCHLORIDE) [Concomitant]
     Active Substance: OXYCODONE HYDROCHLORIDE
     Dosage: 2.50 MG DAILY
     Dates: start: 20140604, end: 20140604
  13. CONTOMIN [Concomitant]
     Active Substance: CHLORPROMAZINE
     Dosage: 25 MG DAILY
     Dates: start: 20140627, end: 20140627
  14. LASIX [Concomitant]
     Active Substance: FUROSEMIDE
     Dosage: UNK
     Dates: start: 20140502, end: 20140506
  15. FOSAPREPITANT DIMEGLUMINE [Suspect]
     Active Substance: FOSAPREPITANT DIMEGLUMINE
     Dosage: 150 MG, QD
     Route: 041
     Dates: start: 20140502, end: 20140502
  16. FLUOROURACIL. [Concomitant]
     Active Substance: FLUOROURACIL
     Dosage: UNK
     Dates: start: 20140502, end: 20140505
  17. DECADRON [Concomitant]
     Active Substance: DEXAMETHASONE
     Dosage: 3.30 MG DAILY
     Dates: start: 20140605, end: 20140606
  18. OXINORM (OXYCODONE HYDROCHLORIDE) [Concomitant]
     Active Substance: OXYCODONE HYDROCHLORIDE
     Dosage: 5 MG DAILY
     Dates: start: 20140502, end: 20140502
  19. OXINORM (OXYCODONE HYDROCHLORIDE) [Concomitant]
     Active Substance: OXYCODONE HYDROCHLORIDE
     Dosage: 15 MG DAILY
     Dates: start: 20140624, end: 20140627
  20. KLARICID [Concomitant]
     Active Substance: CLARITHROMYCIN
     Dosage: 200 MG DAILY
     Dates: start: 20140504, end: 20140504
  21. CONTOMIN [Concomitant]
     Active Substance: CHLORPROMAZINE
     Dosage: 75 MG DAILY
     Dates: start: 20140503, end: 20140503
  22. HANGE-SHASHIN-TO [Concomitant]
     Active Substance: HERBALS
     Dosage: 5 G DIALY
     Dates: start: 20140716, end: 20140716
  23. GASTER [Suspect]
     Active Substance: FAMOTIDINE
     Dosage: 40 MG PER DAY
     Route: 042
     Dates: start: 20140623, end: 20140623
  24. DECADRON [Concomitant]
     Active Substance: DEXAMETHASONE
     Dosage: 6.60 MG DAILY
     Dates: start: 20140502, end: 20140504
  25. DECADRON [Concomitant]
     Active Substance: DEXAMETHASONE
     Dosage: 3.30 MG DAILY
     Dates: start: 20140717, end: 20140718
  26. OXINORM (OXYCODONE HYDROCHLORIDE) [Concomitant]
     Active Substance: OXYCODONE HYDROCHLORIDE
     Dosage: 7.50 MG DAILY
     Dates: start: 20140602, end: 20140602
  27. CONTOMIN [Concomitant]
     Active Substance: CHLORPROMAZINE
     Dosage: 75 MG DAILY
     Dates: start: 20140504, end: 20140505
  28. CONTOMIN [Concomitant]
     Active Substance: CHLORPROMAZINE
     Dosage: 50 MG DAILY
     Dates: start: 20140603, end: 20140603
  29. CONTOMIN [Concomitant]
     Active Substance: CHLORPROMAZINE
     Dosage: 50 MG DAILY
     Dates: start: 20140605, end: 20140606
  30. FOSAPREPITANT DIMEGLUMINE [Suspect]
     Active Substance: FOSAPREPITANT DIMEGLUMINE
     Dosage: 150 MG, QD
     Route: 041
     Dates: start: 20140623, end: 20140623
  31. CISPLATIN. [Suspect]
     Active Substance: CISPLATIN
     Indication: PHARYNGEAL CANCER
     Dosage: 105 MG PER DAY
     Route: 042
     Dates: start: 20140714, end: 20140714
  32. CISPLATIN. [Suspect]
     Active Substance: CISPLATIN
     Dosage: 140 MG PER DAY
     Route: 042
     Dates: start: 20140602, end: 20140602
  33. ALOXI [Suspect]
     Active Substance: PALONOSETRON HYDROCHLORIDE
     Dosage: 0.75 MG PER DAY
     Route: 041
     Dates: start: 20140602, end: 20140602
  34. ONE TAXOTERE [Concomitant]
     Dosage: UNK
     Dates: start: 20140502, end: 20140502
  35. DECADRON [Concomitant]
     Active Substance: DEXAMETHASONE
     Dosage: 1.65 MG DAILY
     Dates: start: 20140506, end: 20140506
  36. LASIX [Concomitant]
     Active Substance: FUROSEMIDE
     Dosage: UNK
     Dates: start: 20140602, end: 20140606
  37. LASIX [Concomitant]
     Active Substance: FUROSEMIDE
     Dosage: UNK
     Dates: start: 20140714, end: 20140718
  38. OXYCONTIN [Concomitant]
     Active Substance: OXYCODONE HYDROCHLORIDE
     Dosage: 10 MG DAILY
     Dates: start: 20140623, end: 20140624
  39. HANGE-SHASHIN-TO [Concomitant]
     Active Substance: HERBALS
     Dosage: 7.50 G DIALY
     Dates: start: 20140714, end: 20140715
  40. FOSAPREPITANT DIMEGLUMINE [Suspect]
     Active Substance: FOSAPREPITANT DIMEGLUMINE
     Dosage: 150 MG, QD
     Route: 041
     Dates: start: 20140602, end: 20140602
  41. DECADRON [Concomitant]
     Active Substance: DEXAMETHASONE
     Dosage: 3.30 MG DAILY
     Dates: start: 20140505, end: 20140505
  42. CELECOX [Concomitant]
     Active Substance: CELECOXIB
     Dosage: UNK
     Dates: start: 20140602, end: 20140606
  43. OXINORM (OXYCODONE HYDROCHLORIDE) [Concomitant]
     Active Substance: OXYCODONE HYDROCHLORIDE
     Dosage: 40 MG DAILY
     Dates: start: 20140714, end: 20140718
  44. KLARICID [Concomitant]
     Active Substance: CLARITHROMYCIN
     Dosage: 400 MG DAILY
     Dates: start: 20140502, end: 20140503
  45. CISPLATIN. [Suspect]
     Active Substance: CISPLATIN
     Dosage: 100 MG PER DAY
     Route: 042
     Dates: start: 20140502, end: 20140502
  46. ALOXI [Suspect]
     Active Substance: PALONOSETRON HYDROCHLORIDE
     Dosage: 0.75 MG PER DAY
     Route: 041
     Dates: start: 20140623, end: 20140623
  47. CELECOX [Concomitant]
     Active Substance: CELECOXIB
     Dosage: UNK
     Dates: start: 20140502, end: 20140506
  48. OXINORM (OXYCODONE HYDROCHLORIDE) [Concomitant]
     Active Substance: OXYCODONE HYDROCHLORIDE
     Dosage: 12.50 MG DAILY
     Dates: start: 20140623, end: 20140623
  49. CONTOMIN [Concomitant]
     Active Substance: CHLORPROMAZINE
     Dosage: 25 MG DAILY
     Dates: start: 20140602, end: 20140602
  50. CONTOMIN [Concomitant]
     Active Substance: CHLORPROMAZINE
     Dosage: 50 MG DAILY
     Dates: start: 20140624, end: 20140626
  51. LASIX [Concomitant]
     Active Substance: FUROSEMIDE
     Dosage: UNK
     Dates: start: 20140623, end: 20140627
  52. GASTER [Suspect]
     Active Substance: FAMOTIDINE
     Dosage: 40 MG PER DAY
     Route: 042
     Dates: start: 20140602, end: 20140602
  53. OXINORM (OXYCODONE HYDROCHLORIDE) [Concomitant]
     Active Substance: OXYCODONE HYDROCHLORIDE
     Dosage: 5 MG DAILY
     Dates: start: 20140605, end: 20140606
  54. CONTOMIN [Concomitant]
     Active Substance: CHLORPROMAZINE
     Dosage: 25 MG DAILY
     Dates: start: 20140623, end: 20140623
  55. OXYCONTIN [Concomitant]
     Active Substance: OXYCODONE HYDROCHLORIDE
     Dosage: 20 MG DAILY
     Dates: start: 20140625, end: 20140627
  56. OXYCONTIN [Concomitant]
     Active Substance: OXYCODONE HYDROCHLORIDE
     Dosage: 120 MG DAILY
     Dates: start: 20140714, end: 20140718
  57. HANGE-SHASHIN-TO [Concomitant]
     Active Substance: HERBALS
     Dosage: 7.50 G DIALY
     Dates: start: 20140717, end: 20140718

REACTIONS (13)
  - Anaemia [Unknown]
  - Dermatitis [Unknown]
  - Blood creatinine increased [Unknown]
  - Gamma-glutamyltransferase increased [Recovered/Resolved]
  - Platelet count decreased [Unknown]
  - Lymphocyte count decreased [Unknown]
  - Blood urea increased [Unknown]
  - Stomatitis [Unknown]
  - Hiccups [Recovered/Resolved]
  - Dysphonia [Unknown]
  - Alanine aminotransferase increased [Recovered/Resolved]
  - Pharyngeal inflammation [Unknown]
  - Dry mouth [Unknown]

NARRATIVE: CASE EVENT DATE: 20140503
